FAERS Safety Report 7914801-6 (Version None)
Quarter: 2011Q4

REPORT INFORMATION
  Report Type: 
  Country: None (occurrence: None)
  Receive Date: 20111115
  Receipt Date: 20111111
  Transmission Date: 20120403
  Serious: Yes (Death, Other)
  Sender: FDA-Public Use
  Company Number: PHHY2011JP099812

PATIENT
  Age: 40 Year
  Sex: Female

DRUGS (3)
  1. FLUOROURACIL [Suspect]
     Indication: COLON CANCER
  2. LEUCOVORIN CALCIUM [Suspect]
     Indication: COLON CANCER
  3. IRINOTECAN HCL [Suspect]
     Indication: COLON CANCER
     Dosage: 150 MG/M2, UNK

REACTIONS (3)
  - DYSARTHRIA [None]
  - NEOPLASM MALIGNANT [None]
  - DEATH [None]
